FAERS Safety Report 11091148 (Version 4)
Quarter: 2015Q4

REPORT INFORMATION
  Report Type: Spontaneous
  Country: GB (occurrence: GB)
  Receive Date: 20150505
  Receipt Date: 20151105
  Transmission Date: 20160304
  Serious: Yes (Hospitalization, Other)
  Sender: FDA-Public Use
  Company Number: GB-WATSON-2015-08866

PATIENT
  Sex: Female
  Weight: 74 kg

DRUGS (4)
  1. METFORMIN (UNKNOWN) [Suspect]
     Active Substance: METFORMIN HYDROCHLORIDE
     Dosage: 850 MG, QID (TABLET)
     Route: 048
     Dates: start: 20121017
  2. METFORMIN (UNKNOWN) [Suspect]
     Active Substance: METFORMIN HYDROCHLORIDE
     Indication: PRODUCT USED FOR UNKNOWN INDICATION
     Dosage: 850 MG, DAILY (TABLET)
     Route: 048
     Dates: start: 2014
  3. SIMVASTATIN. [Concomitant]
     Active Substance: SIMVASTATIN
     Indication: PRODUCT USED FOR UNKNOWN INDICATION
     Dosage: 40 MG, UNKNOWN
     Route: 065
  4. IRON [Concomitant]
     Active Substance: IRON
     Indication: PRODUCT USED FOR UNKNOWN INDICATION
     Dosage: UNK - 20 YEARS OR SO
     Route: 048

REACTIONS (6)
  - Body temperature decreased [Unknown]
  - Hypoglycaemia [Unknown]
  - Condition aggravated [Unknown]
  - Drug prescribing error [Unknown]
  - Weight decreased [Unknown]
  - Lower limb fracture [Unknown]
